FAERS Safety Report 7040528-1 (Version None)
Quarter: 2010Q4

REPORT INFORMATION
  Report Type: 
  Country: None (occurrence: None)
  Receive Date: 20101008
  Receipt Date: 20101008
  Transmission Date: 20110411
  Serious: Yes (Hospitalization)
  Sender: FDA-Public Use
  Company Number: None

PATIENT
  Age: 57 Year
  Sex: Female
  Weight: 86 kg

DRUGS (4)
  1. PRIVIGEN [Suspect]
     Indication: MYASTHENIA GRAVIS
     Dosage: 40 GM DAILY X 4D IV
     Route: 042
     Dates: start: 20100915
  2. PRIVIGEN [Suspect]
     Indication: MYASTHENIA GRAVIS
     Dosage: 40 GM DAILY X 4D IV
     Route: 042
     Dates: start: 20100916
  3. PRIVIGEN [Suspect]
     Indication: MYASTHENIA GRAVIS
     Dosage: 40 GM DAILY X 4D IV
     Route: 042
     Dates: start: 20100917
  4. PRIVIGEN [Suspect]
     Indication: MYASTHENIA GRAVIS
     Dosage: 40 GM DAILY X 4D IV
     Route: 042
     Dates: start: 20100918

REACTIONS (1)
  - MENINGITIS [None]
